FAERS Safety Report 5066854-3 (Version None)
Quarter: 2006Q3

REPORT INFORMATION
  Report Type: 
  Country: None (occurrence: None)
  Receive Date: 20060726
  Receipt Date: 20060713
  Transmission Date: 20061208
  Serious: Yes (Hospitalization, Other)
  Sender: FDA-Public Use
  Company Number: 2006RL000258

PATIENT
  Age: 69 Year
  Sex: Male

DRUGS (8)
  1. OMACOR [Suspect]
     Indication: DRUG USE FOR UNKNOWN INDICATION
     Dosage: 1000 MG;QD;PO
     Route: 048
     Dates: start: 20050524, end: 20060701
  2. LANTUS [Suspect]
     Indication: DIABETES MELLITUS
     Dosage: SC
     Route: 058
     Dates: start: 20050524
  3. OPTIPEN (INSULIN APPLICATION DEVICE) [Suspect]
     Indication: DIABETES MELLITUS
     Dates: start: 20050524
  4. CHLORTHALIDONE [Suspect]
     Indication: HYPERTENSION
     Dosage: 12.5 MG;QD
     Dates: start: 20060501
  5. ATENOLOL [Concomitant]
  6. ASPIRIN [Concomitant]
  7. ENALAPRIL MALEATE [Concomitant]
  8. GLYBURIDE [Concomitant]

REACTIONS (6)
  - ADRENAL DISORDER [None]
  - LUNG DISORDER [None]
  - PANCREATITIS ACUTE [None]
  - PANCREATITIS NECROTISING [None]
  - PLEURAL EFFUSION [None]
  - SPLENOMEGALY [None]
